FAERS Safety Report 23641692 (Version 2)
Quarter: 2024Q1

REPORT INFORMATION
  Report Type: Spontaneous
  Country: SE (occurrence: SE)
  Receive Date: 20240318
  Receipt Date: 20240322
  Transmission Date: 20240410
  Serious: Yes (Other)
  Sender: FDA-Public Use
  Company Number: SE-SEMPA-2024-001757

PATIENT
  Age: 34 Year
  Sex: Male

DRUGS (3)
  1. SERTRALINE [Suspect]
     Active Substance: SERTRALINE HYDROCHLORIDE
     Indication: Anxiety
     Dosage: UNK
     Route: 065
     Dates: start: 202402
  2. Aritonin [Concomitant]
     Indication: Product used for unknown indication
     Dosage: 1 TABLET AT 7 PM, AND 2-3 TABLETS AT 9 PM
     Route: 065
     Dates: start: 20240129
  3. PROMETHAZINE HYDROCHLORIDE\THIOUREA [Concomitant]
     Active Substance: PROMETHAZINE HYDROCHLORIDE\THIOUREA
     Indication: Product used for unknown indication
     Dosage: 25 MILLIGRAM, AS NECESSARY
     Route: 065
     Dates: start: 20230412

REACTIONS (2)
  - Loss of consciousness [Unknown]
  - Syncope [Unknown]

NARRATIVE: CASE EVENT DATE: 20240221
